FAERS Safety Report 5697599-4 (Version None)
Quarter: 2008Q2

REPORT INFORMATION
  Report Type: 
  Country: None (occurrence: None)
  Receive Date: 20080408
  Receipt Date: 20080407
  Transmission Date: 20081010
  Serious: Yes (Other)
  Sender: FDA-Public Use
  Company Number: A0717530A

PATIENT
  Weight: 112 kg

DRUGS (1)
  1. ALLI [Suspect]

REACTIONS (9)
  - DRUG INEFFECTIVE [None]
  - FEELING ABNORMAL [None]
  - GASTROINTESTINAL DISORDER [None]
  - MULTIPLE ALLERGIES [None]
  - NEPHROLITHIASIS [None]
  - PAIN [None]
  - PREMENSTRUAL SYNDROME [None]
  - RENAL PAIN [None]
  - STRESS [None]
